FAERS Safety Report 7009481-0 (Version None)
Quarter: 2010Q3

REPORT INFORMATION
  Report Type: 
  Country: None (occurrence: None)
  Receive Date: 20100923
  Receipt Date: 20100910
  Transmission Date: 20110219
  Serious: Yes (Other)
  Sender: FDA-Public Use
  Company Number: PHHY2010JP60483

PATIENT
  Sex: Male

DRUGS (2)
  1. DIOVAN [Suspect]
     Dosage: UNK
     Route: 048
     Dates: start: 20100906
  2. SARPOGRELATE HYDROCHLORIDE [Concomitant]
     Route: 048

REACTIONS (1)
  - SWOLLEN TONGUE [None]
